FAERS Safety Report 24020986 (Version 2)
Quarter: 2024Q3

REPORT INFORMATION
  Report Type: Report from Study
  Country: US (occurrence: US)
  Receive Date: 20240627
  Receipt Date: 20240805
  Transmission Date: 20241016
  Serious: Yes (Other)
  Sender: ALEXION PHARMACEUTICALS
  Company Number: US-AstraZeneca-CH-00641461A

PATIENT
  Age: 63 Year
  Sex: Male

DRUGS (2)
  1. ULTOMIRIS [Suspect]
     Active Substance: RAVULIZUMAB-CWVZ
     Indication: Product used for unknown indication
     Dosage: UNK
     Route: 065
  2. VOYDEYA [Suspect]
     Active Substance: DANICOPAN
     Indication: Product used for unknown indication
     Dosage: UNK UNK, TID
     Route: 065
     Dates: start: 20240509

REACTIONS (6)
  - Haemoglobin decreased [Not Recovered/Not Resolved]
  - Myelofibrosis [Unknown]
  - Renal impairment [Unknown]
  - Diarrhoea [Unknown]
  - Drug ineffective [Unknown]
  - Full blood count abnormal [Unknown]

NARRATIVE: CASE EVENT DATE: 20240501
